FAERS Safety Report 8684042 (Version 2)
Quarter: 2013Q2

REPORT INFORMATION
  Report Type: Spontaneous
  Country: US (occurrence: US)
  Receive Date: 20120726
  Receipt Date: 20130409
  Transmission Date: 20140414
  Serious: No
  Sender: FDA-Public Use
  Company Number: US-BAYER-2012-073818

PATIENT
  Age: 33 Year
  Sex: Female

DRUGS (1)
  1. MIRENA [Suspect]
     Indication: CONTRACEPTION
     Dosage: 20 MCG/24HR, CONT
     Route: 015
     Dates: start: 201201, end: 20120621

REACTIONS (5)
  - Fluid retention [Recovering/Resolving]
  - Weight increased [Recovering/Resolving]
  - Hyperhidrosis [None]
  - Pollakiuria [None]
  - Abdominal distension [None]
